FAERS Safety Report 13903996 (Version 1)
Quarter: 2017Q3

REPORT INFORMATION
  Report Type: Spontaneous
  Country: US (occurrence: US)
  Receive Date: 20170824
  Receipt Date: 20170824
  Transmission Date: 20171127
  Serious: Yes (Hospitalization)
  Sender: FDA-Public Use
  Company Number: US-UNICHEM LABORATORIES LIMITED-UCM201708-000203

PATIENT
  Age: 26 Year
  Sex: Male

DRUGS (3)
  1. LAMOTRIGINE. [Suspect]
     Active Substance: LAMOTRIGINE
     Indication: AFFECT LABILITY
  2. BENZTROPINE [Concomitant]
     Active Substance: BENZTROPINE
  3. RISPERIDONE. [Concomitant]
     Active Substance: RISPERIDONE

REACTIONS (7)
  - Pyrexia [Recovered/Resolved]
  - Contusion [Recovered/Resolved]
  - Pancytopenia [Recovered/Resolved]
  - Fatigue [Recovered/Resolved]
  - Histiocytosis haematophagic [Recovering/Resolving]
  - Liver function test increased [Recovered/Resolved]
  - Malaise [Recovered/Resolved]
